FAERS Safety Report 7308491-3 (Version None)
Quarter: 2011Q1

REPORT INFORMATION
  Report Type: 
  Country: None (occurrence: None)
  Receive Date: 20110211
  Receipt Date: 20110119
  Transmission Date: 20110831
  Serious: Yes (Hospitalization)
  Sender: FDA-Public Use
  Company Number: LEO-2011-00149

PATIENT
  Age: 57 Year
  Sex: Female

DRUGS (3)
  1. INNOHEP [Suspect]
     Indication: EMBOLISM VENOUS
     Dosage: 14000 IU (14000 IU,1 IN 1 D),SUBCUTANEOUS
     Route: 058
     Dates: start: 20101030, end: 20101105
  2. WARFARIN SODIUM [Suspect]
     Indication: EMBOLISM VENOUS
     Dosage: 3 MG (3 MG,1 IN 1 D),ORAL ; 3 MG (3 MG,1 IN 1 D),ORAL
     Route: 048
     Dates: start: 20110120
  3. WARFARIN SODIUM [Suspect]
     Indication: EMBOLISM VENOUS
     Dosage: 3 MG (3 MG,1 IN 1 D),ORAL ; 3 MG (3 MG,1 IN 1 D),ORAL
     Route: 048
     Dates: start: 20101030, end: 20110119

REACTIONS (6)
  - DYSPNOEA [None]
  - PALPITATIONS [None]
  - BLOOD CALCIUM INCREASED [None]
  - HAEMOGLOBIN DECREASED [None]
  - SUPRAVENTRICULAR TACHYCARDIA [None]
  - BLOOD MAGNESIUM INCREASED [None]
